FAERS Safety Report 7059571-1 (Version None)
Quarter: 2010Q4

REPORT INFORMATION
  Report Type: 
  Country: None (occurrence: None)
  Receive Date: 20101025
  Receipt Date: 20101013
  Transmission Date: 20110411
  Serious: Yes (Other)
  Sender: FDA-Public Use
  Company Number: PHHY2010US65437

PATIENT
  Sex: Male

DRUGS (1)
  1. EXELON [Suspect]
     Indication: ANALGESIC THERAPY
     Dosage: 9.5 MG PER 24 HOURS
     Route: 062
     Dates: start: 20100622, end: 20100927

REACTIONS (1)
  - APPLICATION SITE RASH [None]
